FAERS Safety Report 9286071 (Version 1)
Quarter: 2013Q2

REPORT INFORMATION
  Report Type: Spontaneous
  Country: US (occurrence: US)
  Receive Date: 20130513
  Receipt Date: 20130513
  Transmission Date: 20140414
  Serious: Yes (Other)
  Sender: FDA-Public Use
  Company Number: US-SANOFI-AVENTIS-2013SA046099

PATIENT
  Sex: Female
  Weight: 122.92 kg

DRUGS (2)
  1. LOVENOX [Suspect]
     Route: 065
  2. LOVENOX [Suspect]
     Route: 065

REACTIONS (4)
  - Thrombosis [Unknown]
  - Exposure during pregnancy [Unknown]
  - Neuralgia [Unknown]
  - Discomfort [Unknown]
